FAERS Safety Report 17934483 (Version 1)
Quarter: 2020Q2

REPORT INFORMATION
  Report Type: Spontaneous
  Country: PL (occurrence: PL)
  Receive Date: 20200624
  Receipt Date: 20200624
  Transmission Date: 20200714
  Serious: Yes (Hospitalization)
  Sender: FDA-Public Use
  Company Number: PL-TEVA-2020-PL-1791232

PATIENT
  Age: 42 Year
  Sex: Female

DRUGS (13)
  1. CIPROFLOXACIN. [Interacting]
     Active Substance: CIPROFLOXACIN
     Dosage: 1000 MILLIGRAM DAILY;
     Route: 048
  2. METOCLOPRAMIDE. [Suspect]
     Active Substance: METOCLOPRAMIDE
     Indication: NAUSEA
     Route: 065
  3. DIMENHYDRINATE. [Suspect]
     Active Substance: DIMENHYDRINATE
     Indication: NAUSEA
     Route: 065
  4. QUETIAPINE. [Interacting]
     Active Substance: QUETIAPINE
     Dosage: 25 MILLIGRAM DAILY; AT NIGHT
     Route: 065
  5. PREGABALIN. [Concomitant]
     Active Substance: PREGABALIN
     Dosage: 300 MILLIGRAM DAILY;
  6. DIMENHYDRINATE. [Suspect]
     Active Substance: DIMENHYDRINATE
     Indication: VOMITING
  7. MORPHINE [Concomitant]
     Active Substance: MORPHINE
     Dosage: 160 MILLIGRAM DAILY;
  8. OLANZAPINE. [Suspect]
     Active Substance: OLANZAPINE
     Indication: VOMITING
     Dosage: INITIALLY 5 MG, THEN INCREASED TO 10 MG/DAY
     Route: 065
  9. DEXAMETHASONE. [Suspect]
     Active Substance: DEXAMETHASONE
     Indication: NAUSEA
     Route: 065
  10. METOCLOPRAMIDE. [Suspect]
     Active Substance: METOCLOPRAMIDE
     Indication: VOMITING
  11. PERINDOPRIL W/AMLODIPINE [Interacting]
     Active Substance: AMLODIPINE\PERINDOPRIL
     Indication: HYPERTENSION
     Dosage: PERINDOPRIL 10 MG, AMLODIPINE 10 MG
     Route: 065
  12. DULOXETINE. [Interacting]
     Active Substance: DULOXETINE
     Dosage: 90 MILLIGRAM DAILY;
     Route: 065
  13. DEXAMETHASONE. [Suspect]
     Active Substance: DEXAMETHASONE
     Indication: VOMITING

REACTIONS (9)
  - Anxiety [Unknown]
  - Urinary retention [Unknown]
  - Nausea [Unknown]
  - Drug ineffective [Unknown]
  - Tinnitus [Unknown]
  - Paraesthesia [Unknown]
  - Thirst [Unknown]
  - Drug interaction [Unknown]
  - Vomiting [Unknown]
